FAERS Safety Report 13081934 (Version 1)
Quarter: 2017Q1

REPORT INFORMATION
  Report Type: Spontaneous
  Country: SK (occurrence: SK)
  Receive Date: 20170103
  Receipt Date: 20170103
  Transmission Date: 20170428
  Serious: Yes (Other)
  Sender: FDA-Public Use
  Company Number: SK-ARIAD PHARMACEUTICALS, INC-2016SK007481

PATIENT
  Age: 64 Year
  Sex: Female

DRUGS (1)
  1. ICLUSIG [Suspect]
     Active Substance: PONATINIB
     Indication: CHRONIC MYELOID LEUKAEMIA
     Dosage: 45 MG, QD
     Route: 048
     Dates: start: 201511

REACTIONS (6)
  - Accelerated hypertension [Unknown]
  - Headache [Unknown]
  - Abdominal pain upper [Unknown]
  - Chest pain [Unknown]
  - Pain [Unknown]
  - Insomnia [Unknown]
